FAERS Safety Report 14362088 (Version 1)
Quarter: 2018Q1

REPORT INFORMATION
  Report Type: Report from Study
  Country: None (occurrence: US)
  Receive Date: 20180108
  Receipt Date: 20180108
  Transmission Date: 20180509
  Serious: Yes (Disabling, Other)
  Sender: FDA-Public Use
  Company Number: US-ABBVIE-16K-163-1592622-00

PATIENT
  Age: 62 Year
  Sex: Female

DRUGS (2)
  1. HUMIRA [Suspect]
     Active Substance: ADALIMUMAB
     Indication: RHEUMATOID ARTHRITIS
     Route: 058
     Dates: start: 20160111, end: 20160307
  2. HUMIRA [Suspect]
     Active Substance: ADALIMUMAB
     Route: 058

REACTIONS (19)
  - Palpitations [Recovered/Resolved]
  - Dyspnoea exertional [Not Recovered/Not Resolved]
  - Bone disorder [Not Recovered/Not Resolved]
  - Joint stiffness [Unknown]
  - Pneumonia [Recovered/Resolved]
  - Arthralgia [Unknown]
  - Macular degeneration [Not Recovered/Not Resolved]
  - Rheumatoid lung [Unknown]
  - Upper limb fracture [Recovering/Resolving]
  - Barrett^s oesophagus [Not Recovered/Not Resolved]
  - Immunosuppression [Unknown]
  - Immune system disorder [Not Recovered/Not Resolved]
  - Wrist fracture [Unknown]
  - Arthropathy [Unknown]
  - Arthritis [Not Recovered/Not Resolved]
  - Asthma [Not Recovered/Not Resolved]
  - Lung infection [Unknown]
  - Hypertension [Not Recovered/Not Resolved]
  - Respiratory disorder [Not Recovered/Not Resolved]

NARRATIVE: CASE EVENT DATE: 20160312
